FAERS Safety Report 9511566 (Version 1)
Quarter: 2013Q3

REPORT INFORMATION
  Report Type: Spontaneous
  Country: US (occurrence: None)
  Receive Date: 20130909
  Receipt Date: 20130909
  Transmission Date: 20140515
  Serious: No
  Sender: FDA-Public Use
  Company Number: None

PATIENT
  Age: 57 Year
  Sex: Female
  Weight: 51.26 kg

DRUGS (9)
  1. SOLARAZE [Suspect]
     Indication: ACTINIC KERATOSIS
     Dosage: APPLY GEL TO NOSE APPLIED TO A SURFACE, USUALLY THE SKIN
     Route: 061
     Dates: start: 20130820, end: 20130830
  2. CRESTOR [Concomitant]
  3. AROMASIN [Concomitant]
  4. SYNTHROID [Concomitant]
  5. VIT D [Concomitant]
  6. FISH OIL [Concomitant]
  7. MULTI VITAMIN [Concomitant]
  8. VITAMIN C [Concomitant]
  9. CALCIUM [Concomitant]

REACTIONS (3)
  - Impetigo [None]
  - Streptococcal infection [None]
  - Staphylococcal infection [None]
